FAERS Safety Report 19954381 (Version 1)
Quarter: 2021Q4

REPORT INFORMATION
  Report Type: Report from Study
  Country: TW (occurrence: TW)
  Receive Date: 20211014
  Receipt Date: 20211014
  Transmission Date: 20220303
  Serious: Yes (Other)
  Sender: FDA-Public Use
  Company Number: TW-NOVARTISPH-NVSC2021TW232048

PATIENT
  Sex: Male

DRUGS (7)
  1. COSENTYX [Suspect]
     Active Substance: SECUKINUMAB
     Indication: Psoriasis
     Dosage: 300 MG, PRN
     Route: 058
     Dates: start: 20190214
  2. CELECOXIB [Suspect]
     Active Substance: CELECOXIB
     Indication: Product used for unknown indication
     Dosage: 200 MG, QD
     Route: 048
     Dates: start: 20210913
  3. DOXYCYCLINE [Concomitant]
     Active Substance: DOXYCYCLINE
     Indication: Product used for unknown indication
     Dosage: 100 MG, BID
     Route: 048
     Dates: start: 20210311, end: 20210318
  4. CLOBETASOL PROPIONATE [Concomitant]
     Active Substance: CLOBETASOL PROPIONATE
     Indication: Product used for unknown indication
     Dosage: UNK, BID
     Route: 065
     Dates: start: 20210628, end: 20210712
  5. CALCIPOTRIOL/BETAMETHASONE SANDOZ [Concomitant]
     Indication: Product used for unknown indication
     Dosage: UNK UNK, QD
     Route: 065
     Dates: start: 20210913
  6. CLOBETASOL [Concomitant]
     Active Substance: CLOBETASOL
     Indication: Product used for unknown indication
     Dosage: EVERY OTHER DAY
     Route: 065
     Dates: start: 20210913
  7. SPERSIN [Concomitant]
     Indication: Product used for unknown indication
     Dosage: UNK, BID
     Route: 065
     Dates: start: 20210311, end: 20210318

REACTIONS (8)
  - Cellulitis [Unknown]
  - Tinea cruris [Unknown]
  - Dermatophytosis of nail [Unknown]
  - Pain in extremity [Unknown]
  - Skin exfoliation [Unknown]
  - Laboratory test abnormal [Unknown]
  - Erythema [Unknown]
  - Tinea pedis [Unknown]
